FAERS Safety Report 6124278-1 (Version None)
Quarter: 2009Q1

REPORT INFORMATION
  Report Type: 
  Country: None (occurrence: None)
  Receive Date: 20090319
  Receipt Date: 20090310
  Transmission Date: 20090719
  Serious: Yes (Hospitalization, Other)
  Sender: FDA-Public Use
  Company Number: PHHY2009FR08521

PATIENT
  Sex: Male

DRUGS (13)
  1. INIPOMP [Suspect]
     Indication: PROPHYLAXIS
     Dosage: UNK
     Route: 048
     Dates: start: 20080515, end: 20080529
  2. VANCOMYCIN [Suspect]
     Indication: ENDOCARDITIS
     Dosage: UNK
     Route: 042
     Dates: start: 20071227, end: 20080125
  3. CARDENSIEL [Suspect]
     Indication: CARDIAC FAILURE
     Dosage: 12.5MG/DAY
     Route: 048
     Dates: start: 20080506, end: 20080525
  4. RIFADIN [Suspect]
     Indication: ENDOCARDITIS
     Dosage: 3 DF, BID
     Route: 048
     Dates: start: 20080515, end: 20080527
  5. TRIATEC [Suspect]
     Indication: CARDIAC FAILURE
     Dosage: 5 MG/DAY
     Route: 048
     Dates: start: 20080517, end: 20080529
  6. TAHOR [Suspect]
     Indication: HYPERCHOLESTEROLAEMIA
     Dosage: 1 DF
     Route: 048
     Dates: end: 20080529
  7. ATARAX [Suspect]
     Indication: ANXIETY
     Dosage: 1 DF
     Route: 048
     Dates: start: 20080310, end: 20080529
  8. LEXOMIL [Suspect]
     Indication: ANXIETY
     Dosage: 0.5 DF, BID
     Route: 048
     Dates: start: 20080310, end: 20080529
  9. SINEMET [Suspect]
  10. STALEVO 100 [Suspect]
  11. KARDEGIC [Suspect]
     Dosage: UNK
     Dates: start: 20080515, end: 20080529
  12. LASIX [Suspect]
     Dosage: UNK
     Dates: start: 20080515, end: 20080529
  13. GENTAMICIN [Suspect]
     Indication: ENDOCARDITIS
     Dosage: UNK
     Route: 048
     Dates: start: 20080502

REACTIONS (25)
  - ALANINE AMINOTRANSFERASE INCREASED [None]
  - ANAEMIA [None]
  - ASPARTATE AMINOTRANSFERASE INCREASED [None]
  - BLOOD ALKALINE PHOSPHATASE INCREASED [None]
  - BLOOD CREATININE INCREASED [None]
  - BLOOD UREA INCREASED [None]
  - C-REACTIVE PROTEIN INCREASED [None]
  - CARDIAC FAILURE ACUTE [None]
  - CARDIAC VALVE ABSCESS [None]
  - CARDIAC VALVE REPLACEMENT COMPLICATION [None]
  - DRUG ERUPTION [None]
  - DRUG RASH WITH EOSINOPHILIA AND SYSTEMIC SYMPTOMS [None]
  - ENDOCARDITIS [None]
  - EOSINOPHILIA [None]
  - EPIDERMAL NECROSIS [None]
  - GAMMA-GLUTAMYLTRANSFERASE INCREASED [None]
  - HAEMOGLOBIN DECREASED [None]
  - HEART VALVE REPLACEMENT [None]
  - INFLAMMATION [None]
  - LYMPHADENOPATHY [None]
  - MIXED LIVER INJURY [None]
  - PYREXIA [None]
  - RASH [None]
  - RASH MORBILLIFORM [None]
  - RENAL FAILURE ACUTE [None]
